FAERS Safety Report 6221598-7 (Version None)
Quarter: 2009Q2

REPORT INFORMATION
  Report Type: 
  Country: None (occurrence: None)
  Receive Date: 20090610
  Receipt Date: 20090602
  Transmission Date: 20091009
  Serious: Yes (Hospitalization)
  Sender: FDA-Public Use
  Company Number: US-WATSON-2009-04095

PATIENT
  Sex: Male

DRUGS (3)
  1. CARTIA XT (WATSON LABORATORIES) [Suspect]
     Indication: HEART RATE INCREASED
     Dosage: 120 MG, QAM
     Route: 048
     Dates: start: 20081201
  2. FLOMAX [Suspect]
     Indication: PROSTATOMEGALY
     Dosage: UNK
     Route: 065
     Dates: start: 20090301
  3. FLOMAX [Suspect]
     Dosage: UNK
     Route: 065
     Dates: start: 20060101, end: 20080401

REACTIONS (5)
  - ATRIAL FIBRILLATION [None]
  - DYSURIA [None]
  - GYNAECOMASTIA [None]
  - LUNG DISORDER [None]
  - PROSTATOMEGALY [None]
